FAERS Safety Report 5765450-X (Version None)
Quarter: 2008Q2

REPORT INFORMATION
  Report Type: 
  Country: None (occurrence: None)
  Receive Date: 20080611
  Receipt Date: 20080603
  Transmission Date: 20081010
  Serious: Yes (Hospitalization, Other)
  Sender: FDA-Public Use
  Company Number: A0724540A

PATIENT
  Age: 51 Year
  Sex: Male

DRUGS (3)
  1. LAMICTAL [Suspect]
     Indication: BIPOLAR DISORDER
     Dosage: 600MG VARIABLE DOSE
     Route: 048
     Dates: start: 20061201, end: 20080421
  2. REBIF [Suspect]
  3. MULTIPLE MEDICATIONS [Concomitant]

REACTIONS (5)
  - DRUG INTERACTION [None]
  - OVERDOSE [None]
  - RASH [None]
  - RASH VESICULAR [None]
  - TREATMENT NONCOMPLIANCE [None]
